FAERS Safety Report 25262042 (Version 1)
Quarter: 2025Q2

REPORT INFORMATION
  Report Type: Report from Study
  Country: US (occurrence: US)
  Receive Date: 20250502
  Receipt Date: 20250502
  Transmission Date: 20250716
  Serious: Yes (Hospitalization)
  Sender: ZEALAND PHARMACEUTICALS
  Company Number: US-ZPPROD-ZP25US000986

PATIENT
  Age: 0 Year
  Sex: Female
  Weight: 11.2 kg

DRUGS (18)
  1. DASIGLUCAGON [Suspect]
     Active Substance: DASIGLUCAGON
     Indication: Hyperinsulinism
     Dosage: 10 MICROGRAM, PR. HOUR
     Route: 058
     Dates: start: 20250108, end: 20250108
  2. DASIGLUCAGON [Suspect]
     Active Substance: DASIGLUCAGON
     Dosage: 20 MICROGRAM, PR. HOUR
     Route: 058
     Dates: start: 20250108, end: 20250108
  3. DASIGLUCAGON [Suspect]
     Active Substance: DASIGLUCAGON
     Dosage: 25 MICROGRAM, PR. HOUR
     Route: 058
     Dates: start: 20250108, end: 20250110
  4. DASIGLUCAGON [Suspect]
     Active Substance: DASIGLUCAGON
     Dosage: 30 MICROGRAM, PR. HOUR
     Route: 058
     Dates: start: 20250110, end: 20250112
  5. DASIGLUCAGON [Suspect]
     Active Substance: DASIGLUCAGON
     Dosage: 25 MICROGRAM, PR. HOUR
     Route: 058
     Dates: start: 20250112, end: 20250113
  6. DASIGLUCAGON [Suspect]
     Active Substance: DASIGLUCAGON
     Dosage: 20 MICROGRAM, PR. HOUR
     Route: 058
     Dates: start: 20250113, end: 20250220
  7. DASIGLUCAGON [Suspect]
     Active Substance: DASIGLUCAGON
     Dosage: 25 MICROGRAM, PR. HOUR
     Route: 058
     Dates: start: 20250220, end: 20250322
  8. DASIGLUCAGON [Suspect]
     Active Substance: DASIGLUCAGON
     Dosage: 20 MICROGRAM, PR. HOUR
     Route: 058
     Dates: start: 20250322, end: 20250327
  9. MULTIVITAMIN IRON [Concomitant]
     Indication: Vomiting
     Route: 048
     Dates: start: 20241225
  10. SIMETHICONE (DIMETHICONE) [Concomitant]
     Active Substance: DIMETHICONE
     Indication: Vomiting
     Route: 048
     Dates: start: 20241003
  11. DESITIN [ZINC OXIDE] [Concomitant]
     Indication: Dermatitis diaper
     Route: 061
     Dates: start: 20250111
  12. [Adapt stoma powder] [Concomitant]
     Indication: Dermatitis diaper
     Route: 061
     Dates: start: 20250111
  13. ACETAMINOPHEN [Concomitant]
     Active Substance: ACETAMINOPHEN
     Indication: Dermatitis diaper
     Route: 048
     Dates: start: 20250110
  14. DEXTROSE [Concomitant]
     Active Substance: DEXTROSE MONOHYDRATE
     Indication: Hypoglycaemia
     Dosage: 5.7-24 MILLILITER, PR. HOUR
     Dates: start: 20250114
  15. BETHANECHOL [Concomitant]
     Active Substance: BETHANECHOL
     Indication: Vomiting
     Dates: start: 20250220
  16. BETHANECHOL [Concomitant]
     Active Substance: BETHANECHOL
     Indication: Impaired gastric emptying
  17. FAMOTIDINE [Concomitant]
     Active Substance: FAMOTIDINE
     Indication: Vomiting
     Route: 048
     Dates: start: 20250221
  18. FAMOTIDINE [Concomitant]
     Active Substance: FAMOTIDINE
     Indication: Impaired gastric emptying

REACTIONS (1)
  - Rash [Recovered/Resolved]

NARRATIVE: CASE EVENT DATE: 20250203
